FAERS Safety Report 5090473-6 (Version None)
Quarter: 2006Q3

REPORT INFORMATION
  Report Type: 
  Country: None (occurrence: None)
  Receive Date: 20060828
  Receipt Date: 20060510
  Transmission Date: 20061208
  Serious: No
  Sender: FDA-Public Use
  Company Number: US-GLAXOSMITHKLINE-A0605111A

PATIENT
  Age: 4 Month
  Sex: Female

DRUGS (2)
  1. WELLBUTRIN XL [Suspect]
     Dosage: 300MG PER DAY
     Dates: start: 20060428, end: 20060507
  2. VITAMINS [Concomitant]

REACTIONS (4)
  - COUGH [None]
  - DRUG EXPOSURE VIA BREAST MILK [None]
  - LACRIMATION INCREASED [None]
  - RHINORRHOEA [None]
